FAERS Safety Report 4359453-X (Version None)
Quarter: 2004Q2

REPORT INFORMATION
  Report Type: 
  Country: None (occurrence: None)
  Receive Date: 20040511
  Receipt Date: 20040423
  Transmission Date: 20050107
  Serious: Yes (Life-Threatening, Hospitalization)
  Sender: FDA-Public Use
  Company Number: 200403715

PATIENT
  Age: 52 Year
  Sex: Female
  Weight: 50 kg

DRUGS (2)
  1. TYLENOL [Suspect]
     Dosage: PO
     Route: 048
     Dates: start: 20040405, end: 20040406
  2. VALPROATE [Suspect]
     Dosage: PO
     Route: 048
     Dates: start: 20040405, end: 20040405

REACTIONS (12)
  - ALANINE AMINOTRANSFERASE INCREASED [None]
  - ASPARTATE AMINOTRANSFERASE INCREASED [None]
  - BLOOD ALKALINE PHOSPHATASE INCREASED [None]
  - COAGULATION FACTOR V LEVEL DECREASED [None]
  - COMA [None]
  - DISSEMINATED INTRAVASCULAR COAGULATION [None]
  - HEPATIC FAILURE [None]
  - HEPATIC FUNCTION ABNORMAL [None]
  - INTENTIONAL OVERDOSE [None]
  - LOSS OF CONSCIOUSNESS [None]
  - RENAL FAILURE ACUTE [None]
  - SHOCK [None]
